FAERS Safety Report 8759904 (Version 1)
Quarter: 2012Q4

REPORT INFORMATION
  Report Type: 
  Country: GB (occurrence: GB)
  Receive Date: 20120829
  Receipt Date: 20120829
  Transmission Date: 20130627
  Serious: Yes (Disabling)
  Sender: FDA-Public Use
  Company Number: GB-WATSON-2012-14734

PATIENT
  Age: 86 Year
  Sex: Female

DRUGS (4)
  1. CITALOPRAM HYDROBROMIDE (UNKNOWN) [Suspect]
     Indication: DEPRESSED MOOD
     Dosage: 20 mg, unknown
     Route: 048
     Dates: start: 201203, end: 201204
  2. MEMANTINE [Concomitant]
     Indication: DEMENTIA
     Dosage: 20 mg, unknown current
     Route: 048
     Dates: start: 201110
  3. AMLODIPINE [Concomitant]
     Indication: PRODUCT USED FOR UNKNOWN INDICATION
     Dosage: 5 mg, unknown current
     Route: 048
  4. MEBEVERINE [Concomitant]
     Indication: PRODUCT USED FOR UNKNOWN INDICATION
     Dosage: 200 mg, bid current
     Route: 048

REACTIONS (3)
  - Sedation [Recovered/Resolved]
  - Fall [Recovered/Resolved]
  - Incoherent [Recovered/Resolved]
